FAERS Safety Report 6034400-3 (Version None)
Quarter: 2009Q1

REPORT INFORMATION
  Report Type: 
  Country: None (occurrence: None)
  Receive Date: 20090112
  Receipt Date: 20090107
  Transmission Date: 20090719
  Serious: Yes (Death, Hospitalization)
  Sender: FDA-Public Use
  Company Number: A0749324A

PATIENT
  Age: 60 Year
  Sex: Male
  Weight: 102.3 kg

DRUGS (16)
  1. AVANDIA [Suspect]
     Indication: DIABETES MELLITUS
     Dosage: 8MG IN THE MORNING
     Route: 048
     Dates: start: 20040101, end: 20041223
  2. METFORMIN HCL [Concomitant]
  3. FOLIC ACID [Concomitant]
  4. GEMFIBROZIL [Concomitant]
  5. LEVOTHYROXINE SODIUM [Concomitant]
  6. PLAVIX [Concomitant]
  7. SYNTHROID [Concomitant]
  8. GLUCOPHAGE [Concomitant]
     Dosage: 1000MG TWICE PER DAY
  9. AMARYL [Concomitant]
     Dosage: 4MG TWICE PER DAY
  10. ASPIRIN [Concomitant]
     Dosage: 81MG PER DAY
  11. LOPID [Concomitant]
     Dosage: 600MG PER DAY
  12. RESTORIL [Concomitant]
     Dosage: 15MG AT NIGHT
  13. PROTONIX [Concomitant]
     Dosage: 40MG PER DAY
  14. FLEXERIL [Concomitant]
     Dosage: 10MG THREE TIMES PER DAY
  15. CALCIUM [Concomitant]
     Dosage: 500MG IN THE MORNING
  16. MULTI-VITAMIN [Concomitant]

REACTIONS (7)
  - ARTERIOSCLEROSIS CORONARY ARTERY [None]
  - CARDIAC FAILURE CONGESTIVE [None]
  - CHRONIC OBSTRUCTIVE PULMONARY DISEASE [None]
  - HEART INJURY [None]
  - MYOCARDIAL INFARCTION [None]
  - PNEUMONIA [None]
  - SEPSIS [None]
